FAERS Safety Report 15239409 (Version 1)
Quarter: 2018Q3

REPORT INFORMATION
  Report Type: Spontaneous
  Country: US (occurrence: US)
  Receive Date: 20180803
  Receipt Date: 20180803
  Transmission Date: 20181010
  Serious: Yes (Hospitalization, Other)
  Sender: FDA-Public Use
  Company Number: US-AMNEAL PHARMACEUTICALS-2018AMN00469

PATIENT
  Age: 9 Month
  Sex: Male

DRUGS (2)
  1. VIGABATRIN. [Suspect]
     Active Substance: VIGABATRIN
     Dosage: 500 MG, 1X/DAY
     Route: 048
  2. VIGABATRIN. [Suspect]
     Active Substance: VIGABATRIN
     Dosage: 600 MG, 1X/DAY
     Route: 048

REACTIONS (2)
  - Adverse event [Unknown]
  - Surgery [Unknown]

NARRATIVE: CASE EVENT DATE: 20180704
